FAERS Safety Report 8693086 (Version 2)
Quarter: 2012Q4

REPORT INFORMATION
  Report Type: 
  Country: GB (occurrence: GB)
  Receive Date: 20120730
  Receipt Date: 20120907
  Transmission Date: 20130627
  Serious: Yes (Other)
  Sender: FDA-Public Use
  Company Number: GB-PFIZER INC-2012160204

PATIENT
  Age: 76 Year
  Sex: Male

DRUGS (1)
  1. GABAPENTIN [Suspect]
     Dosage: 300 mg, UNK

REACTIONS (8)
  - Hallucination [Unknown]
  - Fall [Unknown]
  - Pain [Recovering/Resolving]
  - Joint injury [Unknown]
  - Back injury [Unknown]
  - Contusion [Unknown]
  - Gait disturbance [Unknown]
  - Physical product label issue [Unknown]
